FAERS Safety Report 7749819-X (Version None)
Quarter: 2011Q3

REPORT INFORMATION
  Report Type: 
  Country: None (occurrence: None)
  Receive Date: 20110914
  Receipt Date: 20110830
  Transmission Date: 20111222
  Serious: No
  Sender: FDA-Public Use
  Company Number: US-BAYER-2011-081747

PATIENT
  Sex: Female

DRUGS (8)
  1. BORIC ACID [Concomitant]
  2. ALEVE (CAPLET) [Suspect]
     Route: 048
  3. ESTROGEN NOS [Concomitant]
     Dosage: UNK UNK, TIW
  4. LEVOXYL [Concomitant]
  5. ANTIALLERGIC AGENTS, EXCL CORTICOSTEROIDS [Concomitant]
  6. ALLERGY SHOTS [Concomitant]
  7. NEXIUM [Concomitant]
  8. CONTRACEPTIVES NOS [Concomitant]

REACTIONS (5)
  - PARAESTHESIA [None]
  - MUSCLE TWITCHING [None]
  - JAW DISORDER [None]
  - FLUSHING [None]
  - HYPOAESTHESIA [None]
